FAERS Safety Report 11110937 (Version 2)
Quarter: 2015Q2

REPORT INFORMATION
  Report Type: Report from Study
  Country: CA (occurrence: CA)
  Receive Date: 20150513
  Receipt Date: 20150601
  Transmission Date: 20150821
  Serious: Yes (Death)
  Sender: FDA-Public Use
  Company Number: CA-ABBVIE-15P-028-1390252-00

PATIENT
  Age: 69 Year
  Sex: Male

DRUGS (1)
  1. LEUPROLIDE ACETATE DEPOT [Suspect]
     Active Substance: LEUPROLIDE ACETATE
     Indication: PROSTATE CANCER
     Route: 030
     Dates: start: 20120919, end: 20150118

REACTIONS (1)
  - Death [Fatal]

NARRATIVE: CASE EVENT DATE: 20150304
